FAERS Safety Report 7208019-2 (Version None)
Quarter: 2010Q4

REPORT INFORMATION
  Report Type: 
  Country: None (occurrence: None)
  Receive Date: 20101222
  Receipt Date: 20101208
  Transmission Date: 20110411
  Serious: Yes (Hospitalization)
  Sender: FDA-Public Use
  Company Number: UTC-003223

PATIENT
  Sex: Female
  Weight: 85.7 kg

DRUGS (1)
  1. REMODULIN [Suspect]
     Indication: PULMONARY ARTERIAL HYPERTENSION
     Dosage: 1944 UG/KG (1.35 UG/KG,1 IN 1 MIN), SUBCUTAENOUS
     Route: 058

REACTIONS (1)
  - CARDIAC ARREST [None]
